FAERS Safety Report 19544415 (Version 2)
Quarter: 2021Q3

REPORT INFORMATION
  Report Type: Spontaneous
  Country: CA (occurrence: CA)
  Receive Date: 20210714
  Receipt Date: 20210927
  Transmission Date: 20211014
  Serious: Yes (Other)
  Sender: FDA-Public Use
  Company Number: CA-VALIDUS PHARMACEUTICALS LLC-CA-VDP-2021-000031

PATIENT
  Age: 53 Year
  Sex: Male

DRUGS (28)
  1. DICLOFENAC [Suspect]
     Active Substance: DICLOFENAC
     Indication: MIGRAINE
     Dosage: UNK
     Route: 065
  2. GABAPENTIN. [Suspect]
     Active Substance: GABAPENTIN
     Indication: PRODUCT USED FOR UNKNOWN INDICATION
     Dosage: UNK
     Route: 065
  3. ATENOLOL;CHLORTALIDONE [Suspect]
     Active Substance: ATENOLOL\CHLORTHALIDONE
     Indication: PRODUCT USED FOR UNKNOWN INDICATION
     Dosage: 150 MILLIGRAM
     Route: 048
  4. TORADOL [Suspect]
     Active Substance: KETOROLAC TROMETHAMINE
     Indication: PRODUCT USED FOR UNKNOWN INDICATION
     Dosage: UNK
     Route: 065
  5. ENDOCET [Suspect]
     Active Substance: ACETAMINOPHEN\OXYCODONE HYDROCHLORIDE
     Indication: MIGRAINE
     Dosage: UNK
     Route: 065
  6. DEMEROL [Suspect]
     Active Substance: MEPERIDINE HYDROCHLORIDE
     Indication: PRODUCT USED FOR UNKNOWN INDICATION
     Dosage: UNK
     Route: 065
  7. CELECOXIB. [Suspect]
     Active Substance: CELECOXIB
     Indication: PRODUCT USED FOR UNKNOWN INDICATION
     Dosage: 200 MILLIGRAM
     Route: 065
  8. RIZATRIPTAN BENZOATE. [Suspect]
     Active Substance: RIZATRIPTAN BENZOATE
     Indication: PRODUCT USED FOR UNKNOWN INDICATION
     Dosage: UNK
     Route: 065
  9. PARACETAMOL [Suspect]
     Active Substance: ACETAMINOPHEN
     Indication: PRODUCT USED FOR UNKNOWN INDICATION
     Dosage: UNK
     Route: 065
  10. BOTULINUM TOXIN TYPE A [Suspect]
     Active Substance: BOTULINUM TOXIN TYPE A
     Indication: PRODUCT USED FOR UNKNOWN INDICATION
     Dosage: UNK
     Route: 065
  11. ESOMEPRAZOLE MAGNESIUM TRIHYDRATE;NAPROXEN [Suspect]
     Active Substance: ESOMEPRAZOLE MAGNESIUM\NAPROXEN
     Indication: PRODUCT USED FOR UNKNOWN INDICATION
     Dosage: UNK
     Route: 048
  12. CODEINE [Suspect]
     Active Substance: CODEINE
     Indication: MIGRAINE
     Dosage: UNK
     Route: 065
  13. DULOXETINE HYDROCHLORIDE. [Suspect]
     Active Substance: DULOXETINE HYDROCHLORIDE
     Indication: MIGRAINE
     Dosage: 60 MILLIGRAM
     Route: 065
  14. IBUPROFEN. [Suspect]
     Active Substance: IBUPROFEN
     Indication: PRODUCT USED FOR UNKNOWN INDICATION
     Dosage: UNK
     Route: 065
  15. ONDANSETRON HYDROCHLORIDE. [Suspect]
     Active Substance: ONDANSETRON HYDROCHLORIDE
     Indication: MIGRAINE
     Dosage: UNK
     Route: 065
  16. PROPRANOLOL HYDROCHLORIDE. [Suspect]
     Active Substance: PROPRANOLOL HYDROCHLORIDE
     Indication: MIGRAINE
     Dosage: UNK
     Route: 065
  17. DIHYDROERGOTAMINE MESILATE [Suspect]
     Active Substance: DIHYDROERGOTAMINE MESYLATE
     Indication: MIGRAINE
     Dosage: UNK
     Route: 065
  18. HYDROMORPHONE [Suspect]
     Active Substance: HYDROMORPHONE
     Indication: MIGRAINE
     Dosage: UNK
     Route: 065
  19. NORTRIPTYLINE [Suspect]
     Active Substance: NORTRIPTYLINE
     Indication: PRODUCT USED FOR UNKNOWN INDICATION
     Dosage: UNK
     Route: 065
  20. PARACETAMOL + TRAMADOL HYDROCHLORIDE [Suspect]
     Active Substance: ACETAMINOPHEN\TRAMADOL HYDROCHLORIDE
     Indication: MIGRAINE
     Dosage: UNK
     Route: 065
  21. ALMOTRIPTAN MALATE. [Suspect]
     Active Substance: ALMOTRIPTAN MALATE
     Indication: PRODUCT USED FOR UNKNOWN INDICATION
     Dosage: UNK
     Route: 065
  22. AMITRIPTYLINE HYDROCHLORIDE. [Suspect]
     Active Substance: AMITRIPTYLINE HYDROCHLORIDE
     Indication: PRODUCT USED FOR UNKNOWN INDICATION
     Dosage: UNK
     Route: 065
  23. TOPIRAMATE. [Suspect]
     Active Substance: TOPIRAMATE
     Indication: PRODUCT USED FOR UNKNOWN INDICATION
     Dosage: UNK
     Route: 065
  24. VENLAFAXINE HYDROCHLORIDE. [Suspect]
     Active Substance: VENLAFAXINE HYDROCHLORIDE
     Indication: MIGRAINE
     Dosage: UNK
     Route: 065
  25. ESOMEPRAZOLE MAGNESIUM TRIHYDRATE;NAPROXEN [Suspect]
     Active Substance: ESOMEPRAZOLE MAGNESIUM\NAPROXEN
     Dosage: UNK
     Route: 048
  26. KETAMINE [Suspect]
     Active Substance: KETAMINE
     Indication: MIGRAINE
     Dosage: UNK
     Route: 065
  27. MORPHINE SULFATE. [Suspect]
     Active Substance: MORPHINE SULFATE
     Indication: MIGRAINE
     Dosage: UNK
     Route: 065
  28. TOPIRAMATE. [Suspect]
     Active Substance: TOPIRAMATE
     Dosage: UNK
     Route: 065

REACTIONS (7)
  - Nephrolithiasis [Unknown]
  - Nausea [Unknown]
  - Sedation [Unknown]
  - Hyperhidrosis [Unknown]
  - Nightmare [Unknown]
  - Drug ineffective [Unknown]
  - Product use in unapproved indication [Unknown]
